FAERS Safety Report 19042090 (Version 2)
Quarter: 2021Q1

REPORT INFORMATION
  Report Type: Report from Study
  Country: US (occurrence: US)
  Receive Date: 20210322
  Receipt Date: 20210324
  Transmission Date: 20210420
  Serious: Yes (Other)
  Sender: FDA-Public Use
  Company Number: NVSC2021US057728

PATIENT
  Age: 89 Year
  Sex: Male

DRUGS (1)
  1. ENTRESTO [Suspect]
     Active Substance: SACUBITRIL\VALSARTAN
     Indication: CARDIAC FAILURE
     Dosage: 50 MG, BID (24/26 MG)
     Route: 065
     Dates: start: 20201101

REACTIONS (3)
  - Ejection fraction decreased [Unknown]
  - Fall [Unknown]
  - Asthenia [Unknown]

NARRATIVE: CASE EVENT DATE: 20201101
